FAERS Safety Report 16660326 (Version 2)
Quarter: 2019Q3

REPORT INFORMATION
  Report Type: Report from Study
  Country: US (occurrence: US)
  Receive Date: 20190802
  Receipt Date: 20190909
  Transmission Date: 20191004
  Serious: Yes (Other)
  Sender: FDA-Public Use
  Company Number: PHEH2019US031772

PATIENT
  Sex: Female

DRUGS (1)
  1. COSENTYX [Suspect]
     Active Substance: SECUKINUMAB
     Indication: PRODUCT USED FOR UNKNOWN INDICATION
     Route: 065

REACTIONS (8)
  - Rash erythematous [Unknown]
  - Skin hypertrophy [Unknown]
  - Pruritus [Unknown]
  - Needle issue [Unknown]
  - Sneezing [Unknown]
  - Skin exfoliation [Unknown]
  - Contusion [Unknown]
  - Neoplasm malignant [Unknown]
